FAERS Safety Report 4698947-4 (Version None)
Quarter: 2005Q2

REPORT INFORMATION
  Report Type: 
  Country: None (occurrence: None)
  Receive Date: 20050622
  Receipt Date: 20050622
  Transmission Date: 20051028
  Serious: No
  Sender: FDA-Public Use
  Company Number: None

PATIENT
  Age: 43 Year
  Sex: Male
  Weight: 78.9259 kg

DRUGS (1)
  1. SYNTHROID [Suspect]
     Dosage: 1 QD PO
     Route: 048
     Dates: start: 20040901

REACTIONS (1)
  - THYROID FUNCTION TEST ABNORMAL [None]
